FAERS Safety Report 10164137 (Version 1)
Quarter: 2014Q2

REPORT INFORMATION
  Report Type: Spontaneous
  Country: US (occurrence: US)
  Receive Date: 20140510
  Receipt Date: 20140510
  Transmission Date: 20141212
  Serious: No
  Sender: FDA-Public Use
  Company Number: US-BRISTOL-MYERS SQUIBB COMPANY-19987197

PATIENT
  Age: 57 Year
  Sex: Male
  Weight: 100.68 kg

DRUGS (5)
  1. BYDUREON [Suspect]
     Indication: TYPE 2 DIABETES MELLITUS
     Dates: start: 201307, end: 201308
  2. LANTUS [Concomitant]
  3. INSULIN [Concomitant]
     Dosage: 35 UNITS INJ/SQ; BID
     Route: 058
  4. ACTOS [Concomitant]
     Route: 048
  5. QUINAPRIL [Concomitant]
     Indication: HYPERTENSION
     Route: 048

REACTIONS (1)
  - Hypogeusia [Not Recovered/Not Resolved]
